FAERS Safety Report 25936428 (Version 3)
Quarter: 2025Q4

REPORT INFORMATION
  Report Type: Spontaneous
  Country: EU (occurrence: EU)
  Receive Date: 20251017
  Receipt Date: 20251023
  Transmission Date: 20260119
  Serious: Yes (Life-Threatening, Other)
  Sender: ABBVIE
  Company Number: None

PATIENT
  Age: 6 Year
  Sex: Female
  Weight: 30 kg

DRUGS (5)
  1. SEVOFLURANE [Suspect]
     Active Substance: SEVOFLURANE
     Indication: Anaesthesia
     Dosage: PATIENT ROA: RESPIRATORY (INHALATION)
     Route: 065
     Dates: start: 20210208, end: 20210208
  2. SUFENTANIL [Suspect]
     Active Substance: SUFENTANIL
     Indication: Anaesthesia
     Route: 042
     Dates: start: 20210208, end: 20210208
  3. TRACRIUM [Suspect]
     Active Substance: ATRACURIUM BESYLATE
     Indication: Anaesthesia
     Route: 042
     Dates: start: 20210208, end: 20210208
  4. VISIPAQUE [Suspect]
     Active Substance: IODIXANOL
     Indication: Anaesthesia
     Dosage: TIME INTERVAL: TOTAL
     Route: 042
     Dates: start: 20210208
  5. CEFUROXIME [Suspect]
     Active Substance: CEFUROXIME
     Indication: Anaesthesia
     Dosage: UNK, QD
     Route: 042
     Dates: start: 20210208, end: 20210208

REACTIONS (1)
  - Anaphylactic shock [Recovered/Resolved]

NARRATIVE: CASE EVENT DATE: 20210208
